FAERS Safety Report 8367720-8 (Version None)
Quarter: 2012Q2

REPORT INFORMATION
  Report Type: 
  Country: None (occurrence: None)
  Receive Date: 20120517
  Receipt Date: 20120510
  Transmission Date: 20120825
  Serious: Yes (Hospitalization)
  Sender: FDA-Public Use
  Company Number: US-GLAXOSMITHKLINE-A0940128A

PATIENT
  Age: 51 Year
  Sex: Male
  Weight: 85.5 kg

DRUGS (5)
  1. CIPROFLOXACIN [Concomitant]
     Dates: start: 20030901
  2. LOTREL [Concomitant]
  3. GLUCOTROL [Concomitant]
  4. AVANDIA [Suspect]
     Indication: DIABETES MELLITUS
     Dosage: 4MG PER DAY
     Route: 048
     Dates: start: 20010101
  5. AVANDAMET [Suspect]
     Indication: DIABETES MELLITUS
     Route: 048
     Dates: end: 20060119

REACTIONS (5)
  - CORONARY ARTERY BYPASS [None]
  - NEUROPATHY PERIPHERAL [None]
  - MYOCARDIAL INFARCTION [None]
  - CARDIAC FAILURE CONGESTIVE [None]
  - VISUAL ACUITY REDUCED [None]
